FAERS Safety Report 4889824-4 (Version None)
Quarter: 2006Q1

REPORT INFORMATION
  Report Type: 
  Country: None (occurrence: None)
  Receive Date: 20060124
  Receipt Date: 20051005
  Transmission Date: 20060701
  Serious: Yes (Other)
  Sender: FDA-Public Use
  Company Number: US-MERCK-0510USA05562

PATIENT
  Age: 61 Year
  Sex: Female
  Weight: 73 kg

DRUGS (3)
  1. VIOXX [Suspect]
     Indication: ARTHRITIS
     Route: 048
     Dates: start: 20010419, end: 20030625
  2. FIORICET TABLETS [Concomitant]
     Route: 048
  3. XANAX [Concomitant]
     Route: 048

REACTIONS (3)
  - MIGRAINE [None]
  - RETINAL VEIN OCCLUSION [None]
  - TRANSIENT ISCHAEMIC ATTACK [None]
